FAERS Safety Report 5298680-4 (Version None)
Quarter: 2007Q1

REPORT INFORMATION
  Report Type: 
  Country: None (occurrence: None)
  Receive Date: 20070201
  Receipt Date: 20061106
  Transmission Date: 20070707
  Serious: No
  Sender: FDA-Public Use
  Company Number: 2006PV024655

PATIENT
  Age: 68 Year
  Sex: Female
  Weight: 99.7913 kg

DRUGS (12)
  1. BYETTA [Suspect]
     Indication: DIABETES MELLITUS NON-INSULIN-DEPENDENT
     Dosage: SEE IMAGE
     Route: 058
     Dates: start: 20060101, end: 20060101
  2. BYETTA [Suspect]
     Indication: DIABETES MELLITUS NON-INSULIN-DEPENDENT
     Dosage: SEE IMAGE
     Route: 058
     Dates: start: 20060101
  3. AVAPRO [Suspect]
     Indication: BLOOD PRESSURE INCREASED
     Dates: end: 20060101
  4. METFORMIN [Suspect]
     Indication: DIABETES MELLITUS NON-INSULIN-DEPENDENT
     Dates: end: 20060101
  5. ACTOS [Concomitant]
  6. BENICAR [Concomitant]
  7. VERAPAMIL [Concomitant]
  8. FUROSEMIDE [Concomitant]
  9. TOPROL-XL [Concomitant]
  10. PLAVIX [Concomitant]
  11. VYTORIN [Concomitant]
  12. CARDURA [Concomitant]

REACTIONS (2)
  - BLOOD GLUCOSE INCREASED [None]
  - RENAL FUNCTION TEST ABNORMAL [None]
